FAERS Safety Report 8604355-3 (Version None)
Quarter: 2012Q3

REPORT INFORMATION
  Report Type: 
  Country: None (occurrence: None)
  Receive Date: 20120820
  Receipt Date: 20120809
  Transmission Date: 20120928
  Serious: No
  Sender: FDA-Public Use
  Company Number: CA-JNJFOC-20120806601

PATIENT
  Sex: Female
  Weight: 62 kg

DRUGS (4)
  1. REMICADE [Suspect]
     Indication: COLITIS ULCERATIVE
     Route: 042
     Dates: start: 20120225
  2. BISOPROLOL [Concomitant]
     Route: 048
     Dates: start: 20090101
  3. IMURAN [Concomitant]
     Route: 048
     Dates: start: 20120101
  4. YASMIN [Concomitant]
     Route: 048
     Dates: start: 20080101

REACTIONS (1)
  - VULVOVAGINAL MYCOTIC INFECTION [None]
